FAERS Safety Report 22843767 (Version 2)
Quarter: 2023Q4

REPORT INFORMATION
  Report Type: Spontaneous
  Country: CN (occurrence: CN)
  Receive Date: 20230821
  Receipt Date: 20231006
  Transmission Date: 20240110
  Serious: Yes (Life-Threatening, Other)
  Sender: FDA-Public Use
  Company Number: CN-BAYER-2023A116738

PATIENT
  Age: 58 Year
  Sex: Male
  Weight: 65 kg

DRUGS (1)
  1. ULTRAVIST [Suspect]
     Active Substance: IOPROMIDE
     Indication: Computerised tomogram head
     Dosage: 100 ML, ONCE
     Route: 041
     Dates: start: 20230814, end: 20230814

REACTIONS (9)
  - Anaphylactic shock [Recovering/Resolving]
  - Muscular weakness [Not Recovered/Not Resolved]
  - Pruritus [Recovering/Resolving]
  - Flushing [None]
  - Swelling face [None]
  - Dyspnoea [Recovering/Resolving]
  - Blood pressure decreased [Recovering/Resolving]
  - Respiratory rate increased [None]
  - Incorrect drug administration rate [None]

NARRATIVE: CASE EVENT DATE: 20230814
